FAERS Safety Report 4949103-3 (Version None)
Quarter: 2006Q1

REPORT INFORMATION
  Report Type: 
  Country: None (occurrence: None)
  Receive Date: 20060321
  Receipt Date: 20051209
  Transmission Date: 20060701
  Serious: Yes (Hospitalization, Disabling)
  Sender: FDA-Public Use
  Company Number: US-MERCK-0512USA01722

PATIENT
  Age: 66 Year
  Sex: Female

DRUGS (2)
  1. VIOXX [Suspect]
     Indication: ARTHRITIS
     Route: 048
     Dates: start: 20000601, end: 20040901
  2. BUMEX [Concomitant]
     Route: 065

REACTIONS (25)
  - ANGINA PECTORIS [None]
  - ARTHRALGIA [None]
  - AZOTAEMIA [None]
  - BRADYCARDIA [None]
  - BRONCHITIS [None]
  - CORONARY ARTERY DISEASE [None]
  - DEHYDRATION [None]
  - GASTRITIS [None]
  - GASTROOESOPHAGEAL REFLUX DISEASE [None]
  - GOUT [None]
  - HAEMORRHOIDAL HAEMORRHAGE [None]
  - HIATUS HERNIA [None]
  - HYPERKALAEMIA [None]
  - HYPERTENSIVE HEART DISEASE [None]
  - HYPERURICAEMIA [None]
  - HYPOTENSION [None]
  - MONARTHRITIS [None]
  - MYOCARDIAL INFARCTION [None]
  - OCCULT BLOOD POSITIVE [None]
  - OESOPHAGEAL DISORDER [None]
  - POLYURIA [None]
  - POST PROCEDURAL HAEMATOMA [None]
  - RENAL FAILURE [None]
  - STASIS DERMATITIS [None]
  - URINARY TRACT INFECTION [None]
